FAERS Safety Report 19583373 (Version 1)
Quarter: 2021Q3

REPORT INFORMATION
  Report Type: Spontaneous
  Country: US (occurrence: US)
  Receive Date: 20210720
  Receipt Date: 20210720
  Transmission Date: 20211014
  Serious: Yes (Other)
  Sender: FDA-Public Use
  Company Number: US-ENDO PHARMACEUTICALS INC-2021-004385

PATIENT
  Age: 43 Year
  Sex: Male

DRUGS (2)
  1. RANITIDINE HYDROCHLORIDE. [Suspect]
     Active Substance: RANITIDINE HYDROCHLORIDE
     Indication: DYSPEPSIA
     Dosage: 150 MG, QID
     Route: 065
     Dates: start: 200301, end: 200501
  2. RANITIDINE. [Suspect]
     Active Substance: RANITIDINE
     Indication: DYSPEPSIA
     Dosage: 150 MG, QID
     Route: 065
     Dates: start: 200301, end: 200501

REACTIONS (3)
  - Colorectal cancer [Recovering/Resolving]
  - Skin cancer [Unknown]
  - Hernia [Unknown]

NARRATIVE: CASE EVENT DATE: 20050101
